FAERS Safety Report 24103765 (Version 1)
Quarter: 2024Q3

REPORT INFORMATION
  Report Type: Spontaneous
  Country: ZA (occurrence: ZA)
  Receive Date: 20240717
  Receipt Date: 20240717
  Transmission Date: 20241017
  Serious: Yes (Hospitalization)
  Sender: MACLEODS
  Company Number: ZA-MACLEODS PHARMA-MAC2024048151

PATIENT

DRUGS (27)
  1. HYDROCHLOROTHIAZIDE\VALSARTAN [Suspect]
     Active Substance: HYDROCHLOROTHIAZIDE\VALSARTAN
     Indication: Hypertension
     Dosage: 80/12.5 MG TAKE ONE TABLET IN THE MORNING
     Route: 048
  2. ACETAMINOPHEN [Suspect]
     Active Substance: ACETAMINOPHEN
     Indication: Product used for unknown indication
     Route: 065
  3. ZOLPIDEM TARTRATE [Suspect]
     Active Substance: ZOLPIDEM TARTRATE
     Indication: Sleep disorder
     Dosage: AT NIGHT
     Route: 048
  4. PANTOPRAZOLE [Suspect]
     Active Substance: PANTOPRAZOLE
     Indication: Ulcer
     Dosage: IN THE MORNING
     Route: 048
  5. ERGOCALCIFEROL [Suspect]
     Active Substance: ERGOCALCIFEROL
     Indication: Product used for unknown indication
     Route: 048
  6. CHOLINE\INOSITOL\VITAMINS [Suspect]
     Active Substance: CHOLINE\INOSITOL\VITAMINS
     Indication: Blood cholesterol abnormal
     Dosage: AT NIGHT
     Route: 048
  7. ACETAMINOPHEN\TRAMADOL HYDROCHLORIDE [Suspect]
     Active Substance: ACETAMINOPHEN\TRAMADOL HYDROCHLORIDE
     Indication: Pain
     Route: 048
  8. PREGABALIN [Suspect]
     Active Substance: PREGABALIN
     Indication: Epilepsy
     Route: 048
  9. ALLOPURINOL [Suspect]
     Active Substance: ALLOPURINOL
     Indication: Gout
     Route: 048
  10. AMITRIPTYLINE [Suspect]
     Active Substance: AMITRIPTYLINE
     Indication: Depression
     Dosage: ONE TABLET AT 18 HRS
     Route: 048
  11. METHOTREXATE SODIUM [Suspect]
     Active Substance: METHOTREXATE SODIUM
     Indication: Rheumatoid arthritis
     Dosage: 10 TABLETS WEEKLY
     Route: 048
  12. EUTHYROX [Suspect]
     Active Substance: LEVOTHYROXINE SODIUM
     Indication: Hypothyroidism
     Dosage: IN THE MORNING
     Route: 048
  13. SULFASALAZINE [Suspect]
     Active Substance: SULFASALAZINE
     Indication: Colitis ulcerative
     Route: 048
  14. ATENOLOL [Suspect]
     Active Substance: ATENOLOL
     Indication: Hypertension
     Route: 048
  15. FOLIC ACID [Suspect]
     Active Substance: FOLIC ACID
     Indication: Coronary artery disease
     Route: 048
  16. CELECOXIB [Suspect]
     Active Substance: CELECOXIB
     Indication: Pain
     Route: 048
  17. CHLORPHENIRAMINE\PHENYLEPHRINE\PHENYLPROPANOLAMINE\PHENYLTOLOXAMINE [Suspect]
     Active Substance: CHLORPHENIRAMINE\PHENYLEPHRINE\PHENYLPROPANOLAMINE\PHENYLTOLOXAMINE
     Indication: Product used for unknown indication
     Route: 048
  18. ACETYLCYSTEINE [Suspect]
     Active Substance: ACETYLCYSTEINE
     Indication: Product used for unknown indication
     Dosage: TAKE ONE TABLET DISSOLVED IN WATER
     Route: 048
  19. ZOLPIDEM TARTRATE [Suspect]
     Active Substance: ZOLPIDEM TARTRATE
     Indication: Sleep disorder
     Dosage: AT NIGHT
     Route: 048
  20. ACETYLCYSTEINE [Suspect]
     Active Substance: ACETYLCYSTEINE
     Indication: Product used for unknown indication
     Dosage: TAKE ONE TABLET DISSOLVED IN WATER THREE TIMES PER DAY
     Route: 048
  21. MUPIROCIN [Suspect]
     Active Substance: MUPIROCIN
     Indication: Product used for unknown indication
     Dosage: AS INDICATED
     Route: 048
  22. PHENERGAN [Suspect]
     Active Substance: PROMETHAZINE HYDROCHLORIDE
     Indication: Product used for unknown indication
     Route: 048
  23. ACETYLCYSTEINE [Suspect]
     Active Substance: ACETYLCYSTEINE
     Indication: Product used for unknown indication
     Dosage: AS DIRECTED
     Route: 048
  24. ACETAMINOPHEN\CAFFEINE\CODEINE\DOXYLAMINE [Suspect]
     Active Substance: ACETAMINOPHEN\CAFFEINE\CODEINE\DOXYLAMINE
     Indication: Product used for unknown indication
     Dosage: TAKE ONE TO TWO TABLETS THREE TIMES A DAY
     Route: 048
  25. ACETAMINOPHEN\TRAMADOL [Suspect]
     Active Substance: ACETAMINOPHEN\TRAMADOL
     Indication: Pain
     Route: 048
  26. HYDROCHLOROTHIAZIDE\VALSARTAN [Suspect]
     Active Substance: HYDROCHLOROTHIAZIDE\VALSARTAN
     Indication: Hypertension
     Dosage: 80/12.5 MG TAKE ONE TABLET IN THE MORNING
     Route: 048
  27. OMEPRAZOLE [Suspect]
     Active Substance: OMEPRAZOLE
     Indication: Gastrooesophageal reflux disease
     Dosage: TAKE ONE CAPSULE IN THE MORNING
     Route: 048

REACTIONS (2)
  - Limb injury [Unknown]
  - Foot fracture [Unknown]

NARRATIVE: CASE EVENT DATE: 20240101
